FAERS Safety Report 23227264 (Version 1)
Quarter: 2023Q4

REPORT INFORMATION
  Report Type: Report from Study
  Country: BE (occurrence: BE)
  Receive Date: 20231124
  Receipt Date: 20231124
  Transmission Date: 20240110
  Serious: Yes (Hospitalization)
  Sender: FDA-Public Use
  Company Number: BE-PHARMAMAR-2023PM000828

PATIENT

DRUGS (26)
  1. LURBINECTEDIN [Suspect]
     Active Substance: LURBINECTEDIN
     Dosage: 3.2 MILLIGRAM/SQ. METER
     Route: 042
     Dates: start: 20230713, end: 20231102
  2. IRINOTECAN [Suspect]
     Active Substance: IRINOTECAN
     Indication: Small cell lung cancer
     Dosage: 75 MILLIGRAM/SQ. METER, D1D8Q3W
     Route: 042
     Dates: start: 20230601, end: 20230601
  3. IRINOTECAN [Suspect]
     Active Substance: IRINOTECAN
     Dosage: 60 MILLIGRAM/SQ. METER
     Route: 042
     Dates: start: 20230622, end: 20230622
  4. ZOLPIDEM TARTRATE [Concomitant]
     Active Substance: ZOLPIDEM TARTRATE
     Indication: Insomnia
     Dosage: 10 MILLIGRAM, QD
     Route: 048
     Dates: start: 2016
  5. TRELEGY ELLIPTA [Concomitant]
     Active Substance: FLUTICASONE FUROATE\UMECLIDINIUM BROMIDE\VILANTEROL TRIFENATATE
     Indication: Chronic obstructive pulmonary disease
     Dosage: 1 DOSAGE FORM, QD
     Dates: start: 2019
  6. AZITHROMYCIN [Concomitant]
     Active Substance: AZITHROMYCIN
     Indication: Chronic obstructive pulmonary disease
     Route: 048
     Dates: start: 20211211
  7. XGEVA [Concomitant]
     Active Substance: DENOSUMAB
     Indication: Osteoporosis
     Dosage: 120 MILLIGRAM, Q4W
     Route: 058
     Dates: start: 202212
  8. PANTOMED [DEXPANTHENOL] [Concomitant]
     Indication: Gastritis prophylaxis
     Dosage: 20 MILLIGRAM, QD
     Route: 048
     Dates: start: 20230502
  9. FENTANYL [Concomitant]
     Active Substance: FENTANYL\FENTANYL CITRATE
     Indication: Cancer pain
     Dosage: 50 MICROGRAM
     Route: 062
     Dates: start: 20230527
  10. ALIZAPRIDE HYDROCHLORIDE [Concomitant]
     Active Substance: ALIZAPRIDE HYDROCHLORIDE
     Indication: Vomiting
     Dosage: 50 MILLIGRAM, PRN
     Route: 048
     Dates: start: 20230602
  11. DAFALGAN [Concomitant]
     Active Substance: ACETAMINOPHEN
     Indication: Pain
     Dosage: 1 GRAM, PRN
     Route: 048
     Dates: start: 20230628
  12. MOTILIUM [Concomitant]
     Active Substance: DOMPERIDONE
     Indication: Vomiting
     Dosage: 10 MILLIGRAM, PRN
     Route: 048
     Dates: start: 20230628
  13. ONDANSETRON [Concomitant]
     Active Substance: ONDANSETRON
     Indication: Vomiting
     Dosage: 8 MILLIGRAM, PRN
     Route: 048
     Dates: start: 20230703
  14. ONDANSETRON [Concomitant]
     Active Substance: ONDANSETRON
     Dosage: 8 MILLIGRAM
     Route: 048
     Dates: start: 20231102, end: 20231102
  15. CALCIUM CARBONATE\CHOLECALCIFEROL [Concomitant]
     Active Substance: CALCIUM CARBONATE\CHOLECALCIFEROL
     Indication: Vitamin D deficiency
     Dosage: 1000 MILLIGRAM, QD
     Route: 048
     Dates: start: 20230714
  16. FLUTICASONE PROPIONATE [Concomitant]
     Active Substance: FLUTICASONE PROPIONATE
     Indication: Bronchial obstruction
     Dosage: 1 DOSAGE FORM, QD
     Dates: start: 20230803
  17. VENTOLIN [Concomitant]
     Active Substance: ALBUTEROL SULFATE
     Indication: Bronchial obstruction
     Dosage: 2 DOSAGE FORM, PRN
     Dates: start: 20230803
  18. MICONAZOLE [Concomitant]
     Active Substance: MICONAZOLE
     Indication: Stomatitis
     Dosage: 1 DOSAGE FORM
     Route: 048
     Dates: start: 20230810
  19. ZYPREXA [Concomitant]
     Active Substance: OLANZAPINE
     Indication: Malaise
     Dosage: 10 MILLIGRAM, PRN
     Route: 048
     Dates: start: 20230930
  20. ACETYLCYSTEINE [Concomitant]
     Active Substance: ACETYLCYSTEINE
     Indication: Nasopharyngitis
     Dosage: 600 MILLIGRAM, TID
     Route: 048
     Dates: start: 20231010
  21. ARANESP [Concomitant]
     Active Substance: DARBEPOETIN ALFA
     Indication: Anaemia
     Dosage: 1 DOSAGE FORM, QD
     Route: 058
     Dates: start: 20231102, end: 20231102
  22. INJECTAFER [Concomitant]
     Active Substance: FERRIC CARBOXYMALTOSE
     Indication: Anaemia
     Dosage: 500 MILLIGRAM, QD
     Route: 042
     Dates: start: 20231102, end: 20231102
  23. SOLU-MEDROL [Concomitant]
     Active Substance: METHYLPREDNISOLONE SODIUM SUCCINATE
     Indication: Prophylaxis of nausea and vomiting
     Dosage: 40 MILLIGRAM
     Route: 042
     Dates: start: 20231102, end: 20231102
  24. UREUM [Concomitant]
     Indication: Hyponatraemia
     Dosage: 30 GRAM, BID
     Route: 048
     Dates: start: 20231102
  25. LIPEGFILGRASTIM [Concomitant]
     Active Substance: LIPEGFILGRASTIM
     Dosage: 6 MILLIGRAM
     Route: 058
     Dates: start: 20231103, end: 20231103
  26. MEDROL [Concomitant]
     Active Substance: METHYLPREDNISOLONE
     Indication: Prophylaxis
     Dosage: 40 MILLIGRAM, QD
     Route: 048
     Dates: start: 20231103, end: 20231104

REACTIONS (1)
  - Malaise [Not Recovered/Not Resolved]

NARRATIVE: CASE EVENT DATE: 20231110
